FAERS Safety Report 8784685 (Version 1)
Quarter: 2012Q4

REPORT INFORMATION
  Report Type: Spontaneous
  Country: US (occurrence: None)
  Receive Date: 20120828
  Receipt Date: 20120828
  Transmission Date: 20130627
  Serious: Yes (Hospitalization)
  Sender: FDA-Public Use
  Company Number: DSA_59106_2012

PATIENT
  Age: 55 Year

DRUGS (3)
  1. FLUOROURACIL [Suspect]
     Indication: GASTRIC CANCER STAGE I
  2. OXALIPLATIN [Concomitant]
  3. FOLINIC ACID [Concomitant]

REACTIONS (5)
  - Coronary artery thrombosis [None]
  - Electrocardiogram ST segment depression [None]
  - Electrocardiogram T wave inversion [None]
  - Ventricular dysfunction [None]
  - Troponin I increased [None]
